FAERS Safety Report 6730948-4 (Version None)
Quarter: 2010Q2

REPORT INFORMATION
  Report Type: 
  Country: None (occurrence: None)
  Receive Date: 20100518
  Receipt Date: 20100507
  Transmission Date: 20101027
  Serious: Yes (Hospitalization, Other)
  Sender: FDA-Public Use
  Company Number: DE-JNJFOC-20080605030

PATIENT
  Sex: Male
  Weight: 88 kg

DRUGS (9)
  1. REMICADE [Suspect]
     Indication: CROHN'S DISEASE
     Route: 042
  2. REMICADE [Suspect]
     Route: 042
  3. REMICADE [Suspect]
     Route: 042
  4. BUDESONIDE [Concomitant]
     Indication: CROHN'S DISEASE
  5. CELIPRO LICH [Concomitant]
  6. NITRENDIPINE 10 [Concomitant]
  7. CLAVERSAL [Concomitant]
  8. CALCIUM EFFERVESCENT [Concomitant]
  9. VIGANTOLETTEN [Concomitant]

REACTIONS (5)
  - ABDOMINAL ADHESIONS [None]
  - CROHN'S DISEASE [None]
  - ILEAL STENOSIS [None]
  - ILEUS [None]
  - SMALL INTESTINAL PERFORATION [None]
